FAERS Safety Report 19090385 (Version 2)
Quarter: 2021Q2

REPORT INFORMATION
  Report Type: Spontaneous
  Country: JP (occurrence: JP)
  Receive Date: 20210405
  Receipt Date: 20210614
  Transmission Date: 20210717
  Serious: Yes (Other)
  Sender: FDA-Public Use
  Company Number: JP-009507513-2103JPN002107J

PATIENT
  Age: 70 Year
  Sex: Female

DRUGS (4)
  1. KEYTRUDA [Suspect]
     Active Substance: PEMBROLIZUMAB
     Indication: COLON CANCER
     Dosage: 200 MILLIGRAM, Q3W
     Route: 041
     Dates: start: 202004, end: 202103
  2. BILANOA [Concomitant]
     Active Substance: BILASTINE
     Dosage: UNK
     Route: 065
  3. ALLELOCK [Concomitant]
     Active Substance: OLOPATADINE HYDROCHLORIDE
     Dosage: UNK
     Route: 065
  4. TALION [BEPOTASTINE BESILATE] [Concomitant]
     Active Substance: BEPOTASTINE BESYLATE
     Dosage: UNK
     Route: 065

REACTIONS (6)
  - Pemphigoid [Not Recovered/Not Resolved]
  - Oral disorder [Unknown]
  - Oropharyngeal discomfort [Unknown]
  - Erythema [Unknown]
  - Oculomucocutaneous syndrome [Unknown]
  - Oropharyngeal pain [Unknown]

NARRATIVE: CASE EVENT DATE: 2021
